FAERS Safety Report 6386518-3 (Version None)
Quarter: 2009Q4

REPORT INFORMATION
  Report Type: 
  Country: None (occurrence: None)
  Receive Date: 20091002
  Receipt Date: 20090723
  Transmission Date: 20100525
  Serious: No
  Sender: FDA-Public Use
  Company Number: US-ASTRAZENECA-2009UW06018

PATIENT
  Age: 65 Year
  Sex: Female
  Weight: 111.1 kg

DRUGS (1)
  1. ARIMIDEX [Suspect]
     Dosage: UNKNOWN
     Route: 048
     Dates: start: 20080501

REACTIONS (5)
  - ASTHENIA [None]
  - FATIGUE [None]
  - MUSCLE SPASMS [None]
  - THYROID DISORDER [None]
  - WEIGHT DECREASED [None]
